FAERS Safety Report 5680117-4 (Version None)
Quarter: 2008Q1

REPORT INFORMATION
  Report Type: 
  Country: None (occurrence: None)
  Receive Date: 20080326
  Receipt Date: 20080320
  Transmission Date: 20080703
  Serious: Yes (Life-Threatening, Hospitalization, Other)
  Sender: FDA-Public Use
  Company Number: US-NOVOPROD-270431

PATIENT
  Sex: Female

DRUGS (7)
  1. NORDITROPIN NORDIFLEX [Suspect]
     Indication: HAEMODIALYSIS
     Dosage: 2 MG, QD
     Route: 058
     Dates: start: 20071012, end: 20071204
  2. NORDITROPIN NORDIFLEX [Suspect]
     Dosage: 2 MG, QD
     Route: 058
     Dates: start: 20071212, end: 20071218
  3. FOSRENOL [Concomitant]
     Indication: HYPERPHOSPHATAEMIA
     Dosage: 3000 MG, QD
     Route: 048
     Dates: start: 20070810
  4. AGGRENOX [Concomitant]
     Indication: PROPHYLAXIS
     Dosage: 2 CAPS, QD
     Route: 048
     Dates: start: 20070720
  5. DIOVAN                             /01319601/ [Concomitant]
     Indication: CARDIAC FAILURE
     Dosage: 160 MG, QD
     Route: 048
     Dates: start: 20070203
  6. DILTIAZEM [Concomitant]
     Indication: HYPERTENSION
     Dosage: 240 MG, QD
     Route: 048
     Dates: start: 20070203
  7. HUMULIN                            /00646001/ [Concomitant]
     Indication: DIABETES MELLITUS
     Dosage: 40 U, QD
     Route: 058
     Dates: start: 20070203

REACTIONS (2)
  - ATRIAL FIBRILLATION [None]
  - CARDIAC FAILURE [None]
